FAERS Safety Report 24828726 (Version 1)
Quarter: 2025Q1

REPORT INFORMATION
  Report Type: Spontaneous
  Country: US (occurrence: US)
  Receive Date: 20250110
  Receipt Date: 20250110
  Transmission Date: 20250409
  Serious: No
  Sender: APOTEX
  Company Number: US-APOTEX-2024AP020307

PATIENT
  Age: 75 Year
  Sex: Female

DRUGS (1)
  1. TRAVOPROST [Suspect]
     Active Substance: TRAVOPROST
     Indication: Glaucoma
     Route: 065
     Dates: start: 202411

REACTIONS (5)
  - Eyelid exfoliation [Unknown]
  - Instillation site scab [Unknown]
  - Product substitution issue [Unknown]
  - Eye irritation [Unknown]
  - Eyelids pruritus [Unknown]

NARRATIVE: CASE EVENT DATE: 20241101
